FAERS Safety Report 6834046-0 (Version None)
Quarter: 2010Q3

REPORT INFORMATION
  Report Type: 
  Country: None (occurrence: None)
  Receive Date: 20100712
  Receipt Date: 20070409
  Transmission Date: 20110219
  Serious: No
  Sender: FDA-Public Use
  Company Number: US-PFIZER INC-2007028724

PATIENT
  Sex: Female
  Weight: 72.57 kg

DRUGS (2)
  1. CHANTIX [Suspect]
     Indication: SMOKING CESSATION THERAPY
     Route: 048
     Dates: start: 20070331
  2. ALLEGRA D 24 HOUR [Concomitant]

REACTIONS (6)
  - CHEST DISCOMFORT [None]
  - DRUG INTOLERANCE [None]
  - FATIGUE [None]
  - FLATULENCE [None]
  - MALAISE [None]
  - SUFFOCATION FEELING [None]
